FAERS Safety Report 9288181 (Version 2)
Quarter: 2013Q2

REPORT INFORMATION
  Report Type: Spontaneous
  Country: CA (occurrence: CA)
  Receive Date: 20130514
  Receipt Date: 20130614
  Transmission Date: 20140414
  Serious: Yes (Other)
  Sender: FDA-Public Use
  Company Number: CA-BAYER-2013-055429

PATIENT
  Sex: Female

DRUGS (2)
  1. ALEVE [Suspect]
     Indication: ARTHRITIS
     Dosage: UNK
  2. ADVIL [Concomitant]
     Indication: ARTHRITIS
     Dosage: 1-2 A DAY

REACTIONS (3)
  - Coeliac disease [None]
  - Drug ineffective [None]
  - Musculoskeletal stiffness [None]
